FAERS Safety Report 23032948 (Version 6)
Quarter: 2025Q3

REPORT INFORMATION
  Report Type: Report from Study
  Country: EU (occurrence: EU)
  Receive Date: 20231005
  Receipt Date: 20250912
  Transmission Date: 20251020
  Serious: Yes (Hospitalization, Other)
  Sender: AMGEN
  Company Number: EU-ROCHE-3387403

PATIENT
  Age: 61 Year
  Sex: Male
  Weight: 61.7 kg

DRUGS (4)
  1. BEVACIZUMAB [Suspect]
     Active Substance: BEVACIZUMAB
     Indication: Hepatocellular carcinoma
     Route: 065
     Dates: start: 20230425
  2. ATEZOLIZUMAB [Suspect]
     Active Substance: ATEZOLIZUMAB
     Indication: Hepatocellular carcinoma
     Route: 042
     Dates: start: 20230425
  3. ZALDIAR [Concomitant]
     Active Substance: ACETAMINOPHEN\TRAMADOL HYDROCHLORIDE
     Dosage: UNK, BID
     Dates: start: 20230808
  4. AMOXICILLIN\CLAVULANATE POTASSIUM [Concomitant]
     Active Substance: AMOXICILLIN\CLAVULANATE POTASSIUM
     Dates: start: 20230906

REACTIONS (5)
  - Abscess limb [Not Recovered/Not Resolved]
  - Hypothyroidism [Recovering/Resolving]
  - Hypothyroidism [Recovering/Resolving]
  - Myalgia [Not Recovered/Not Resolved]
  - Urticaria pigmentosa [Not Recovered/Not Resolved]

NARRATIVE: CASE EVENT DATE: 20230606
